FAERS Safety Report 7606219-0 (Version None)
Quarter: 2011Q3

REPORT INFORMATION
  Report Type: 
  Country: None (occurrence: None)
  Receive Date: 20110713
  Receipt Date: 20110628
  Transmission Date: 20111222
  Serious: Yes (Hospitalization, Other)
  Sender: FDA-Public Use
  Company Number: US-BAYER-US-SHR-04-020548

PATIENT
  Age: 29 Year
  Sex: Female
  Weight: 92.971 kg

DRUGS (6)
  1. HERBAL HORMONE THERAPY [Concomitant]
  2. SIBUTRAMINE HYDROCHLORIDE [Concomitant]
     Dosage: 15 MG, UNK
     Route: 048
  3. YASMIN [Suspect]
     Indication: ORAL CONTRACEPTION
     Dosage: UNK UNK, QD
     Route: 048
     Dates: start: 20021201, end: 20030702
  4. GLUCOPHAGE [Concomitant]
     Dosage: 500 MG, BID
     Route: 048
  5. SULFAMETHOXAZOLE [Concomitant]
     Dosage: UNK
     Dates: start: 20030401
  6. METFORMIN HCL [Concomitant]

REACTIONS (5)
  - PULMONARY EMBOLISM [None]
  - PULMONARY INFARCTION [None]
  - MENSTRUATION DELAYED [None]
  - BACK PAIN [None]
  - WEIGHT INCREASED [None]
